FAERS Safety Report 8053313-9 (Version None)
Quarter: 2012Q1

REPORT INFORMATION
  Report Type: 
  Country: None (occurrence: None)
  Receive Date: 20120118
  Receipt Date: 20120111
  Transmission Date: 20120608
  Serious: Yes (Hospitalization)
  Sender: FDA-Public Use
  Company Number: DE-ROCHE-1022692

PATIENT
  Sex: Female
  Weight: 78.6 kg

DRUGS (3)
  1. DOCETAXEL [Concomitant]
  2. AVASTIN [Suspect]
     Indication: BREAST CANCER METASTATIC
  3. METFORMIN HCL [Concomitant]
     Indication: DIABETES MELLITUS

REACTIONS (2)
  - GENERAL PHYSICAL HEALTH DETERIORATION [None]
  - CEREBRAL ISCHAEMIA [None]
